FAERS Safety Report 5137059-2 (Version None)
Quarter: 2006Q4

REPORT INFORMATION
  Report Type: 
  Country: None (occurrence: None)
  Receive Date: 20061024
  Receipt Date: 20061024
  Transmission Date: 20070319
  Serious: No
  Sender: FDA-Public Use
  Company Number: None

PATIENT
  Age: 19 Year
  Sex: Female

DRUGS (3)
  1. DEPAKOTE [Suspect]
     Dates: start: 20051120, end: 20060101
  2. ZYRTEC [Concomitant]
  3. DEPO-PROVERA [Concomitant]

REACTIONS (12)
  - ASTHENIA [None]
  - CHOLECYSTITIS ACUTE [None]
  - CHROMATURIA [None]
  - COUGH [None]
  - DIZZINESS [None]
  - FEELING HOT AND COLD [None]
  - HEPATIC TRAUMA [None]
  - INFLUENZA LIKE ILLNESS [None]
  - OCULAR ICTERUS [None]
  - ORAL INTAKE REDUCED [None]
  - PRURITUS [None]
  - UTERINE PAIN [None]
